FAERS Safety Report 12229578 (Version 1)
Quarter: 2016Q1

REPORT INFORMATION
  Report Type: Spontaneous
  Country: US (occurrence: None)
  Receive Date: 20160331
  Receipt Date: 20160331
  Transmission Date: 20160526
  Serious: No
  Sender: FDA-Public Use
  Company Number: None

PATIENT
  Sex: Female

DRUGS (2)
  1. ZOLADEX [Suspect]
     Active Substance: GOSERELIN ACETATE
     Indication: PELVIC PAIN
     Route: 058
     Dates: start: 20151230, end: 20160229
  2. ZOLADEX [Suspect]
     Active Substance: GOSERELIN ACETATE
     Indication: PERINEAL PAIN
     Route: 058
     Dates: start: 20151230, end: 20160229

REACTIONS (2)
  - Rash [None]
  - Headache [None]
